FAERS Safety Report 19606291 (Version 2)
Quarter: 2021Q3

REPORT INFORMATION
  Report Type: Spontaneous
  Country: US (occurrence: US)
  Receive Date: 20210725
  Receipt Date: 20210903
  Transmission Date: 20211014
  Serious: No
  Sender: FDA-Public Use
  Company Number: US-SA-2021SA242763

PATIENT
  Sex: Female

DRUGS (1)
  1. FABRAZYME [Suspect]
     Active Substance: AGALSIDASE BETA
     Indication: FABRY^S DISEASE
     Dosage: 75 MG, QOW
     Route: 042
     Dates: start: 20190212

REACTIONS (5)
  - Condition aggravated [Unknown]
  - Chest pain [Unknown]
  - Blood pressure increased [Unknown]
  - Arterial occlusive disease [Recovering/Resolving]
  - Stress [Unknown]
